FAERS Safety Report 8465420-7 (Version None)
Quarter: 2012Q2

REPORT INFORMATION
  Report Type: 
  Country: None (occurrence: None)
  Receive Date: 20120626
  Receipt Date: 20120621
  Transmission Date: 20120825
  Serious: Yes (Other)
  Sender: FDA-Public Use
  Company Number: DE-SANOFI-AVENTIS-2012SA044695

PATIENT
  Age: 80 Year
  Sex: Male

DRUGS (2)
  1. MULTAQ [Suspect]
     Indication: ATRIAL FIBRILLATION
     Route: 048
     Dates: end: 20120101
  2. MARCUMAR [Concomitant]

REACTIONS (4)
  - DIABETIC NEUROPATHY [None]
  - ADVERSE REACTION [None]
  - GAIT DISTURBANCE [None]
  - ATRIAL FIBRILLATION [None]
